FAERS Safety Report 4330575-2 (Version None)
Quarter: 2004Q1

REPORT INFORMATION
  Report Type: 
  Country: None (occurrence: None)
  Receive Date: 20040329
  Receipt Date: 20040322
  Transmission Date: 20041129
  Serious: Yes (Disabling)
  Sender: FDA-Public Use
  Company Number: TCI2004A00672

PATIENT
  Age: 76 Year
  Sex: Male

DRUGS (1)
  1. LEUPLIN FOR INJECTION KIT 3.75(LEUPROLIDE ACETATE) (INJECTION) [Suspect]
     Indication: PROSTATE CANCER
     Dosage: 3.75 MG (3.75 MG, 1 IN 28 D),SUBCUTANEOUS
     Route: 058
     Dates: start: 20030128

REACTIONS (12)
  - BLOOD CORTISOL DECREASED [None]
  - BLOOD PRESSURE DECREASED [None]
  - EYELID PTOSIS [None]
  - HAEMATOMA [None]
  - HEADACHE [None]
  - HYPOPITUITARISM [None]
  - IIIRD NERVE PARALYSIS [None]
  - NAUSEA [None]
  - PITUITARY HAEMORRHAGE [None]
  - THYROXINE FREE DECREASED [None]
  - TRI-IODOTHYRONINE DECREASED [None]
  - TUMOUR NECROSIS [None]
